FAERS Safety Report 6437246-7 (Version None)
Quarter: 2009Q4

REPORT INFORMATION
  Report Type: 
  Country: None (occurrence: None)
  Receive Date: 20091112
  Receipt Date: 20091106
  Transmission Date: 20100525
  Serious: Yes (Other)
  Sender: FDA-Public Use
  Company Number: FR-ROCHE-663999

PATIENT
  Sex: Female
  Weight: 74 kg

DRUGS (6)
  1. MIRCERA [Suspect]
     Dosage: RECEIVED 2 INJECTIONS
     Route: 058
     Dates: start: 20090710
  2. TEMERIT [Interacting]
     Route: 048
     Dates: start: 20080701, end: 20090727
  3. ATACAND [Concomitant]
     Route: 048
     Dates: start: 20080701
  4. FUROSEMIDE [Concomitant]
     Route: 048
     Dates: start: 20080701
  5. VASTAREL [Concomitant]
     Route: 048
     Dates: start: 20080701
  6. ZOCOR [Concomitant]
     Route: 048
     Dates: start: 20080701

REACTIONS (4)
  - DRUG INTERACTION [None]
  - ECZEMA [None]
  - NAIL INJURY [None]
  - OEDEMA PERIPHERAL [None]
